FAERS Safety Report 15635119 (Version 1)
Quarter: 2018Q4

REPORT INFORMATION
  Report Type: Spontaneous
  Country: FR (occurrence: FR)
  Receive Date: 20181119
  Receipt Date: 20181119
  Transmission Date: 20190205
  Serious: Yes (Hospitalization)
  Sender: FDA-Public Use
  Company Number: FR-B.I. PHARMACEUTICALS,INC./RIDGEFIELD-2018-12-003729

PATIENT
  Age: 2 Year
  Sex: Male
  Weight: 13.9 kg

DRUGS (4)
  1. CATAPRESSAN [Suspect]
     Active Substance: CLONIDINE
     Indication: WITHDRAWAL SYNDROME
     Dosage: FORM STRENGTH: 0,15 MG/ML; SOLUTION INJECTABLE
     Route: 042
     Dates: start: 20180930
  2. BACTRIM [Interacting]
     Active Substance: SULFAMETHOXAZOLE\TRIMETHOPRIM
     Indication: ANTIFUNGAL PROPHYLAXIS
     Dosage: SUSPENSION BUVABLE
     Route: 048
     Dates: end: 20181019
  3. FENTANYL MYLAN [Interacting]
     Active Substance: FENTANYL
     Indication: SEDATIVE THERAPY
     Route: 042
     Dates: start: 20180926
  4. MODIGRAF [Interacting]
     Active Substance: TACROLIMUS
     Indication: PROPHYLAXIS AGAINST TRANSPLANT REJECTION
     Dosage: GRANULES POUR SUSPENSION BUVABLE
     Route: 048
     Dates: start: 20180926

REACTIONS (5)
  - Drug interaction [Recovered/Resolved]
  - Psychomotor hyperactivity [Recovered/Resolved]
  - Confusional state [Recovered/Resolved]
  - Tremor [Recovered/Resolved]
  - Depressed level of consciousness [Recovered/Resolved]

NARRATIVE: CASE EVENT DATE: 20181011
